FAERS Safety Report 17680577 (Version 3)
Quarter: 2020Q2

REPORT INFORMATION
  Report Type: Report from Study
  Country: CA (occurrence: CA)
  Receive Date: 20200417
  Receipt Date: 20200506
  Transmission Date: 20200714
  Serious: Yes (Hospitalization)
  Sender: FDA-Public Use
  Company Number: CA-GLAXOSMITHKLINE-CA2020AMR049827

PATIENT
  Sex: Male

DRUGS (1)
  1. MEPOLIZUMAB [Suspect]
     Active Substance: MEPOLIZUMAB
     Indication: ASTHMA
     Dosage: 100 MG, Z, MONTHLY
     Route: 042
     Dates: start: 20200130

REACTIONS (6)
  - Rash erythematous [Recovered/Resolved]
  - Psoriasis [Unknown]
  - Rash [Recovered/Resolved]
  - Rash papular [Unknown]
  - Hypersensitivity [Recovered/Resolved]
  - Pain [Recovered/Resolved]
